FAERS Safety Report 7023216-7 (Version None)
Quarter: 2010Q3

REPORT INFORMATION
  Report Type: 
  Country: None (occurrence: None)
  Receive Date: 20100930
  Receipt Date: 20100920
  Transmission Date: 20110219
  Serious: Yes (Hospitalization, Disabling)
  Sender: FDA-Public Use
  Company Number: FR-MYLANLABS-2008S1016225

PATIENT
  Age: 3 Year
  Sex: Male

DRUGS (12)
  1. CYSTAGON [Suspect]
     Indication: CYSTINOSIS
     Route: 048
     Dates: start: 20031218
  2. CYSTAGON [Suspect]
     Route: 048
  3. CYSTAGON [Suspect]
     Route: 048
     Dates: start: 20100602
  4. SODIUM BICARBONATE [Concomitant]
     Dates: start: 20030901
  5. OMEPRAZOLE [Concomitant]
     Dates: start: 20040727
  6. L-CARNITINE [Concomitant]
     Dates: start: 20040812
  7. POTASSIUM CITRATE [Concomitant]
  8. DOMPERIDONE [Concomitant]
  9. SODIUM PHOSPHATE W/SODIUM PHOSPHATE DIBASIC [Concomitant]
     Dates: start: 20030901
  10. ALPHACALCIDOL [Concomitant]
     Dates: start: 20040113
  11. CYSTEAMINE /00492501/ [Concomitant]
     Route: 047
     Dates: start: 20040330
  12. SYTRON [Concomitant]
     Dates: start: 20030901, end: 20060215

REACTIONS (4)
  - BENIGN INTRACRANIAL HYPERTENSION [None]
  - GAIT DISTURBANCE [None]
  - MULTIPLE EPIPHYSEAL DYSPLASIA [None]
  - MUSCLE CONTRACTURE [None]
